FAERS Safety Report 17183636 (Version 1)
Quarter: 2019Q4

REPORT INFORMATION
  Report Type: Spontaneous
  Country: CN (occurrence: CN)
  Receive Date: 20191220
  Receipt Date: 20191220
  Transmission Date: 20200122
  Serious: Yes (Life-Threatening, Other)
  Sender: FDA-Public Use
  Company Number: CN-ASTRAZENECA-2019SF84047

PATIENT
  Age: 37455 Day
  Sex: Male
  Weight: 60 kg

DRUGS (4)
  1. ESOMEPRAZOLE SODIUM FOR INJECTION [Suspect]
     Active Substance: ESOMEPRAZOLE SODIUM
     Indication: DYSPEPSIA
     Route: 041
     Dates: start: 20191128, end: 20191128
  2. SODIUM CHLORIDE INJECTION [Concomitant]
     Active Substance: SODIUM CHLORIDE
     Route: 041
     Dates: start: 20191128, end: 20191128
  3. ESOMEPRAZOLE SODIUM FOR INJECTION [Suspect]
     Active Substance: ESOMEPRAZOLE SODIUM
     Indication: ABDOMINAL DISCOMFORT
     Route: 041
     Dates: start: 20191128, end: 20191128
  4. ESOMEPRAZOLE SODIUM FOR INJECTION [Suspect]
     Active Substance: ESOMEPRAZOLE SODIUM
     Indication: GASTROINTESTINAL HAEMORRHAGE
     Route: 041
     Dates: start: 20191128, end: 20191128

REACTIONS (9)
  - Hypertension [Recovering/Resolving]
  - Heart rate increased [Unknown]
  - Anaphylactoid reaction [Unknown]
  - Pyrexia [Recovering/Resolving]
  - Body temperature abnormal [Recovering/Resolving]
  - Chills [Recovering/Resolving]
  - Respiratory rate increased [Unknown]
  - Limb discomfort [Recovering/Resolving]
  - Dyspnoea [Recovering/Resolving]

NARRATIVE: CASE EVENT DATE: 20191128
